FAERS Safety Report 17392506 (Version 26)
Quarter: 2024Q4

REPORT INFORMATION
  Report Type: Report from Study
  Country: CA (occurrence: CA)
  Receive Date: 20200207
  Receipt Date: 20241016
  Transmission Date: 20250114
  Serious: Yes (Other)
  Sender: ROCHE
  Company Number: CA-ROCHE-2515343

PATIENT
  Age: 41 Year
  Sex: Female

DRUGS (2)
  1. OCREVUS [Suspect]
     Active Substance: OCRELIZUMAB
     Indication: Relapsing-remitting multiple sclerosis
     Dosage: 300 MG AT DAY 0 AND 14, THEN 600 MG EVERY 6 MONTH
     Route: 042
     Dates: start: 20191227
  2. LORAZEPAM [Concomitant]
     Active Substance: LORAZEPAM
     Dosage: ONCE OR TWICE DAILY, AS NEEDED

REACTIONS (50)
  - Stress [Not Recovered/Not Resolved]
  - Insomnia [Not Recovered/Not Resolved]
  - Infusion related reaction [Recovered/Resolved]
  - Hypoaesthesia [Recovered/Resolved]
  - Rash erythematous [Recovered/Resolved]
  - Fatigue [Unknown]
  - Eye pain [Recovered/Resolved]
  - Pneumonia [Recovering/Resolving]
  - Hypotension [Unknown]
  - Cough [Recovering/Resolving]
  - Asthenia [Unknown]
  - Rhinorrhoea [Recovered/Resolved]
  - Eye haemorrhage [Unknown]
  - Back pain [Unknown]
  - Candida infection [Unknown]
  - Urinary tract infection [Not Recovered/Not Resolved]
  - Ear disorder [Recovered/Resolved]
  - Nasopharyngitis [Recovered/Resolved]
  - Emotional disorder [Not Recovered/Not Resolved]
  - Paranoia [Unknown]
  - Brain fog [Not Recovered/Not Resolved]
  - Dysarthria [Not Recovered/Not Resolved]
  - Headache [Unknown]
  - Bronchitis [Unknown]
  - Chest discomfort [Recovered/Resolved]
  - Malaise [Unknown]
  - Dry mouth [Unknown]
  - Pyrexia [Unknown]
  - Vertigo [Not Recovered/Not Resolved]
  - Muscle twitching [Not Recovered/Not Resolved]
  - Dyspnoea [Not Recovered/Not Resolved]
  - Dizziness [Unknown]
  - Glucose urine present [Unknown]
  - Chills [Recovered/Resolved]
  - Pain [Unknown]
  - Blood urine present [Unknown]
  - Dysuria [Unknown]
  - Oropharyngeal pain [Unknown]
  - Sneezing [Unknown]
  - Flushing [Unknown]
  - Nausea [Unknown]
  - Neutrophil count decreased [Not Recovered/Not Resolved]
  - White blood cell count decreased [Unknown]
  - Vomiting [Unknown]
  - Intestinal haemorrhage [Unknown]
  - Nephrolithiasis [Unknown]
  - Breath odour [Unknown]
  - Gastrooesophageal reflux disease [Recovered/Resolved]
  - Scratch [Unknown]
  - White blood cell count increased [Not Recovered/Not Resolved]

NARRATIVE: CASE EVENT DATE: 20191227
